FAERS Safety Report 6097288-0 (Version None)
Quarter: 2009Q1

REPORT INFORMATION
  Report Type: 
  Country: None (occurrence: None)
  Receive Date: 20090226
  Receipt Date: 20090226
  Transmission Date: 20090719
  Serious: Yes (Hospitalization)
  Sender: FDA-Public Use
  Company Number: None

PATIENT
  Age: 20 Year
  Sex: Female

DRUGS (7)
  1. PHENAZOPYRIDINE 100MG [Suspect]
     Indication: CYSTITIS INTERSTITIAL
     Dosage: 100MG TID PO
     Route: 048
     Dates: start: 20080701, end: 20090217
  2. SEASONIQUE [Concomitant]
  3. LEXAPRO [Concomitant]
  4. OXYCODONE AND ACETAMINOPHEN [Concomitant]
  5. ELMIRON [Concomitant]
  6. ELAVIL [Concomitant]
  7. OXYCODONE HCL [Concomitant]

REACTIONS (5)
  - CYANOSIS [None]
  - DYSPNOEA [None]
  - METHAEMOGLOBINAEMIA [None]
  - SULPHAEMOGLOBINAEMIA [None]
  - SWOLLEN TONGUE [None]
